FAERS Safety Report 7244249-1 (Version None)
Quarter: 2011Q1

REPORT INFORMATION
  Report Type: 
  Country: None (occurrence: None)
  Receive Date: 20110119
  Receipt Date: 20110119
  Transmission Date: 20110831
  Serious: Yes (Other)
  Sender: FDA-Public Use
  Company Number: None

PATIENT
  Age: 78 Year
  Sex: Male
  Weight: 81.6475 kg

DRUGS (1)
  1. VIMOVO [Suspect]
     Indication: PRODUCT USED FOR UNKNOWN INDICATION
     Dosage: ONE TABLET TWICE DAILY PO
     Route: 048

REACTIONS (7)
  - DYSPEPSIA [None]
  - FLATULENCE [None]
  - OEDEMA PERIPHERAL [None]
  - DYSARTHRIA [None]
  - WEIGHT INCREASED [None]
  - DYSPNOEA [None]
  - WHEEZING [None]
